FAERS Safety Report 24648934 (Version 1)
Quarter: 2024Q4

REPORT INFORMATION
  Report Type: Spontaneous
  Country: FR (occurrence: FR)
  Receive Date: 20241121
  Receipt Date: 20241121
  Transmission Date: 20250115
  Serious: Yes (Death, Hospitalization)
  Sender: FRESENIUS KABI
  Company Number: FR-ROCHE-10000122159

PATIENT
  Age: 67 Year
  Sex: Female

DRUGS (14)
  1. PACLITAXEL [Suspect]
     Active Substance: PACLITAXEL
     Indication: Non-small cell lung cancer
     Dosage: DATE OF LAST ADMINISTRATION OF STUDY TREATMENT: 17/OCT/2024?ROUTE OF ADMINISTRATION: UNKNOWN
     Dates: start: 20240315
  2. BEVACIZUMAB [Suspect]
     Active Substance: BEVACIZUMAB
     Indication: Non-small cell lung cancer
     Dosage: DATE OF LAST ADMINISTRATION OF STUDY TREATMENT: 17/OCT/2024?ROA: UNKNOWN
     Dates: start: 20240315
  3. ATORVASTATIN [Concomitant]
     Active Substance: ATORVASTATIN
     Indication: Product used for unknown indication
     Dosage: ROA: UNKNOWN
  4. ELIQUIS [APIXABAN] [Concomitant]
     Indication: Product used for unknown indication
     Dosage: ROA: UNKNOWN
  5. ELIQUIS [APIXABAN] [Concomitant]
     Route: 065
  6. DENOSUMAB [DENOSUMAB] [Concomitant]
     Indication: Product used for unknown indication
     Dosage: ROA: UNKNOWN
  7. DENOSUMAB [DENOSUMAB] [Concomitant]
     Route: 065
  8. OROCAL D3 [COLECALCIFEROL, CALCIUM CARBONATE] [Concomitant]
     Indication: Product used for unknown indication
     Dosage: ROA: UNKNOWN
  9. ACETAMINOPHEN [Concomitant]
     Active Substance: ACETAMINOPHEN
     Indication: Product used for unknown indication
     Dosage: ROA: UNKNOWN
  10. ACETAMINOPHEN [Concomitant]
     Active Substance: ACETAMINOPHEN
     Route: 065
  11. DEROXAT [PAROXETINE HYDROCHLORIDE] [Concomitant]
     Indication: Product used for unknown indication
     Dosage: ROA: UNKNOWN
  12. DEROXAT [PAROXETINE HYDROCHLORIDE] [Concomitant]
     Route: 065
  13. GRANOCYTE [LENOGRASTIM] [Concomitant]
     Indication: Product used for unknown indication
     Dosage: ROA: UNKNOWN
  14. LEXOMIL [BROMAZEPAM] [Concomitant]
     Indication: Product used for unknown indication

REACTIONS (1)
  - Haemorrhage intracranial [Fatal]

NARRATIVE: CASE EVENT DATE: 20241028
